FAERS Safety Report 22852365 (Version 5)
Quarter: 2023Q4

REPORT INFORMATION
  Report Type: Report from Study
  Country: US (occurrence: US)
  Receive Date: 20230823
  Receipt Date: 20231206
  Transmission Date: 20240110
  Serious: Yes (Other)
  Sender: FDA-Public Use
  Company Number: US-002147023-NVSC2023US180120

PATIENT
  Sex: Female

DRUGS (1)
  1. KISQALI [Suspect]
     Active Substance: RIBOCICLIB
     Indication: Breast cancer
     Dosage: UNK
     Route: 048

REACTIONS (9)
  - Ascites [Recovered/Resolved with Sequelae]
  - Metastases to ovary [Unknown]
  - Urinary tract disorder [Unknown]
  - Constipation [Unknown]
  - Rash papular [Unknown]
  - Fatigue [Unknown]
  - Skin exfoliation [Unknown]
  - Chills [Unknown]
  - Erythema [Unknown]
